FAERS Safety Report 10733295 (Version 1)
Quarter: 2015Q1

REPORT INFORMATION
  Report Type: Report from Study
  Country: DE (occurrence: DE)
  Receive Date: 20150123
  Receipt Date: 20150123
  Transmission Date: 20150721
  Serious: Yes (Hospitalization)
  Sender: FDA-Public Use
  Company Number: DE-ABBVIE-14P-062-1313624-00

PATIENT
  Age: 62 Year
  Sex: Male

DRUGS (9)
  1. DUODOPA [Suspect]
     Active Substance: CARBIDOPA\LEVODOPA
     Indication: PARKINSON^S DISEASE
     Dosage: MD 6.0 ML,CRD 4.7 ML/H,ED 3.0 ML
     Route: 050
     Dates: start: 20121220
  2. BIFITERAL [Concomitant]
     Active Substance: LACTULOSE
     Indication: PRODUCT USED FOR UNKNOWN INDICATION
     Dosage: 1-1-1-0
  3. DUODOPA [Suspect]
     Active Substance: CARBIDOPA\LEVODOPA
     Dosage: CRD 4.8 ML/U
     Route: 050
  4. PLAVIX [Concomitant]
     Active Substance: CLOPIDOGREL BISULFATE
     Indication: PRODUCT USED FOR UNKNOWN INDICATION
     Dosage: 1-0-0-0
  5. MIRTAZAPINE (REMERGIL SOLO) [Concomitant]
     Indication: PRODUCT USED FOR UNKNOWN INDICATION
     Dosage: 0-0-0-1
  6. SIMVASTATINE [Concomitant]
     Active Substance: SIMVASTATIN
     Indication: PRODUCT USED FOR UNKNOWN INDICATION
     Dosage: 0-0-1-0
  7. EXELON [Concomitant]
     Active Substance: RIVASTIGMINE TARTRATE
     Indication: PRODUCT USED FOR UNKNOWN INDICATION
     Dosage: 1-0-0-0
     Route: 062
  8. PANTOZOL [Concomitant]
     Active Substance: PANTOPRAZOLE SODIUM
     Indication: PRODUCT USED FOR UNKNOWN INDICATION
     Dosage: 1-0-1
     Dates: start: 2014, end: 2014
  9. TAMSULOSINE [Concomitant]
     Active Substance: TAMSULOSIN HYDROCHLORIDE
     Indication: PRODUCT USED FOR UNKNOWN INDICATION
     Dosage: 1-0-0-0

REACTIONS (11)
  - Gait disturbance [Unknown]
  - Vitamin B6 deficiency [Unknown]
  - Intracranial aneurysm [Unknown]
  - Vitamin B12 deficiency [Unknown]
  - General physical health deterioration [Not Recovered/Not Resolved]
  - Performance status decreased [Not Recovered/Not Resolved]
  - Muscular weakness [Unknown]
  - Carotid arteriosclerosis [Unknown]
  - Gastric mucosa erythema [Unknown]
  - Folate deficiency [Unknown]
  - Device dislocation [Unknown]

NARRATIVE: CASE EVENT DATE: 20141108
